FAERS Safety Report 7116677-6 (Version None)
Quarter: 2010Q4

REPORT INFORMATION
  Report Type: 
  Country: None (occurrence: None)
  Receive Date: 20101122
  Receipt Date: 20101110
  Transmission Date: 20110411
  Serious: Yes (Other)
  Sender: FDA-Public Use
  Company Number: B0683728A

PATIENT
  Sex: Male

DRUGS (3)
  1. RETROVIR [Suspect]
     Dates: start: 20060101
  2. KIVEXA [Suspect]
     Dates: start: 20060101
  3. REYATAZ [Suspect]
     Dates: start: 20060101

REACTIONS (1)
  - JAUNDICE [None]
